FAERS Safety Report 5428301-9 (Version None)
Quarter: 2007Q3

REPORT INFORMATION
  Report Type: 
  Country: None (occurrence: None)
  Receive Date: 20070731
  Receipt Date: 20070424
  Transmission Date: 20080115
  Serious: No
  Sender: FDA-Public Use
  Company Number: US200704005665

PATIENT
  Age: 65 Year
  Sex: Female

DRUGS (12)
  1. BYETTA [Suspect]
     Indication: TYPE 2 DIABETES MELLITUS
     Dosage: 5 UG, 2/D, SUBCUTANEOUS; 10 UG, 2/D, SUBCUTANEOUS; 5 UG, 2/D, SUBCUTANEOUS; 5 UG, EACH MORNING, SUBC
     Route: 058
     Dates: start: 20070101, end: 20070101
  2. BYETTA [Suspect]
     Indication: TYPE 2 DIABETES MELLITUS
     Dosage: 5 UG, 2/D, SUBCUTANEOUS; 10 UG, 2/D, SUBCUTANEOUS; 5 UG, 2/D, SUBCUTANEOUS; 5 UG, EACH MORNING, SUBC
     Route: 058
     Dates: start: 20070201, end: 20070101
  3. BYETTA [Suspect]
     Indication: TYPE 2 DIABETES MELLITUS
     Dosage: 5 UG, 2/D, SUBCUTANEOUS; 10 UG, 2/D, SUBCUTANEOUS; 5 UG, 2/D, SUBCUTANEOUS; 5 UG, EACH MORNING, SUBC
     Route: 058
     Dates: start: 20060901, end: 20070201
  4. BYETTA [Suspect]
     Indication: TYPE 2 DIABETES MELLITUS
     Dosage: 5 UG, 2/D, SUBCUTANEOUS; 10 UG, 2/D, SUBCUTANEOUS; 5 UG, 2/D, SUBCUTANEOUS; 5 UG, EACH MORNING, SUBC
     Route: 058
     Dates: start: 20070101, end: 20070401
  5. BYETTA [Suspect]
     Indication: TYPE 2 DIABETES MELLITUS
     Dosage: 5 UG, 2/D, SUBCUTANEOUS; 10 UG, 2/D, SUBCUTANEOUS; 5 UG, 2/D, SUBCUTANEOUS; 5 UG, EACH MORNING, SUBC
     Route: 058
     Dates: start: 20070101, end: 20070401
  6. BYETTA [Suspect]
     Indication: TYPE 2 DIABETES MELLITUS
     Dosage: 5 UG, 2/D, SUBCUTANEOUS; 10 UG, 2/D, SUBCUTANEOUS; 5 UG, 2/D, SUBCUTANEOUS; 5 UG, EACH MORNING, SUBC
     Route: 058
     Dates: start: 20070401
  7. EXENATIDE [Concomitant]
  8. GLUCOPHAGE [Concomitant]
  9. TOPROL-XL [Concomitant]
  10. LIPITOR [Concomitant]
  11. COZAAR [Concomitant]
  12. ASPIRIN [Concomitant]

REACTIONS (4)
  - ACCIDENTAL NEEDLE STICK [None]
  - NAUSEA [None]
  - VOMITING [None]
  - WEIGHT DECREASED [None]
